FAERS Safety Report 4639702-0 (Version None)
Quarter: 2005Q2

REPORT INFORMATION
  Report Type: 
  Country: None (occurrence: None)
  Receive Date: 20050418
  Receipt Date: 20050406
  Transmission Date: 20051028
  Serious: Yes (Life-Threatening)
  Sender: FDA-Public Use
  Company Number: 2005056459

PATIENT
  Age: 76 Year
  Sex: Male

DRUGS (11)
  1. ALDACTONE [Suspect]
     Indication: CARDIAC FAILURE CONGESTIVE
     Dosage: 50 MG (QD), ORAL
     Route: 048
     Dates: start: 20040315, end: 20041019
  2. CELEBREX [Suspect]
     Indication: ARTHRITIS
     Dosage: 200 MG (QD), ORAL
     Route: 048
     Dates: start: 20041004, end: 20041019
  3. AMILORIDE HCL AND HYDROCHLOROTHIAZIDE [Suspect]
     Indication: CARDIAC FAILURE CONGESTIVE
     Dosage: ORAL
     Route: 048
     Dates: end: 20041019
  4. HYDROCHLOROTHIAZIDE [Suspect]
     Indication: CARDIAC FAILURE CONGESTIVE
     Dosage: ORAL
     Route: 048
     Dates: end: 20041019
  5. RAMIPRIL [Suspect]
     Indication: CARDIAC FAILURE CONGESTIVE
     Dosage: 8 MG (QD), ORAL
     Route: 048
     Dates: end: 20041019
  6. NITROFURANTOIN [Concomitant]
  7. ASPIRIN [Concomitant]
  8. RABEPRAZOLE SODIUM [Concomitant]
  9. VACCINIUM MACROCARPON (VACCINIUM MACROCARPON) [Concomitant]
  10. ATORVASTATIN CALCIUM [Concomitant]
  11. CARVEDILOL HYDROCHLORIDE (CARVEDILOL HYDROCHLORIDE) [Concomitant]

REACTIONS (3)
  - BRADYCARDIA [None]
  - HYPERKALAEMIA [None]
  - RENAL FAILURE [None]
